FAERS Safety Report 9184858 (Version 1)
Quarter: 2013Q1

REPORT INFORMATION
  Report Type: Spontaneous
  Country: US (occurrence: US)
  Receive Date: 20130325
  Receipt Date: 20130325
  Transmission Date: 20140127
  Serious: Yes (Hospitalization)
  Sender: FDA-Public Use
  Company Number: US-BRISTOL-MYERS SQUIBB COMPANY-16505398

PATIENT
  Age: 72 Year
  Sex: Male

DRUGS (1)
  1. ERBITUX [Suspect]
     Indication: HEAD AND NECK CANCER
     Dosage: 1ST DOSE:LOADING DOSE
     Route: 042
     Dates: start: 20120403, end: 20120403

REACTIONS (1)
  - Anaphylactic reaction [Recovered/Resolved]
